FAERS Safety Report 9816483 (Version 1)
Quarter: 2014Q1

REPORT INFORMATION
  Report Type: Spontaneous
  Country: CH (occurrence: CH)
  Receive Date: 20140114
  Receipt Date: 20140114
  Transmission Date: 20141002
  Serious: Yes (Death, Other)
  Sender: FDA-Public Use
  Company Number: CH-PFIZER INC-2014008783

PATIENT
  Age: 50 Year
  Sex: Female

DRUGS (3)
  1. NEURONTIN [Suspect]
     Dosage: UNK
  2. GABAPENTIN [Suspect]
     Indication: NEURALGIA
     Dosage: 100 MG, 9X/DAY
     Dates: end: 201308
  3. GABAPENTIN [Suspect]
     Dosage: TOOK ONLY 1 CAPSULE WITH THE NEW EXCIPIENTS

REACTIONS (4)
  - Death [Fatal]
  - Dizziness [Recovering/Resolving]
  - Nausea [Recovering/Resolving]
  - Head injury [Unknown]
